FAERS Safety Report 17994943 (Version 2)
Quarter: 2020Q3

REPORT INFORMATION
  Report Type: Report from Study
  Country: US (occurrence: US)
  Receive Date: 20200708
  Receipt Date: 20200723
  Transmission Date: 20201103
  Serious: Yes (Hospitalization)
  Sender: FDA-Public Use
  Company Number: US-PFIZER INC-2020252653

PATIENT
  Age: 2 Year
  Sex: Female
  Weight: 12 kg

DRUGS (11)
  1. DIPHENHYDRAMINE ELIXIR [Concomitant]
  2. TEMSIROLIMUS. [Suspect]
     Active Substance: TEMSIROLIMUS
     Indication: EMBRYONAL RHABDOMYOSARCOMA
     Dosage: 10MG/M2 (MAX DOSE 25MG) IV OVER 30?60 MINUTES ON DAYS 1, 8, AND 15 OF CYCLES 11?14
     Route: 042
     Dates: start: 20190906, end: 20200619
  3. CAMPTOSAR [Suspect]
     Active Substance: IRINOTECAN HYDROCHLORIDE
     Indication: EMBRYONAL RHABDOMYOSARCOMA
     Dosage: IV OVER 90 MINUTES ON DAYS 1?5 OF CYCLES 11 AND 13
     Route: 042
     Dates: start: 20190927, end: 20200519
  4. CYCLOPHOSPHAMIDE. [Suspect]
     Active Substance: CYCLOPHOSPHAMIDE
     Indication: EMBRYONAL RHABDOMYOSARCOMA
     Dosage: IV OVER 60 MINUTES ON DAY 1 OF CYCLES 12 AND 14
     Route: 042
     Dates: start: 20190906, end: 20200605
  5. SULFAMETHOXAZOLE/TRIMETHOPRIM [Concomitant]
     Active Substance: SULFAMETHOXAZOLE\TRIMETHOPRIM
  6. VINCRISTINE SULFATE. [Suspect]
     Active Substance: VINCRISTINE SULFATE
     Indication: EMBRYONAL RHABDOMYOSARCOMA
     Dosage: ON DAYS 1, 8 AND 15 OF CYCLE 11, ON DAY 1 OF CYCLE 12 AND 14, ON DAYS 1 AND 8 OF CYCLE 13.
     Route: 042
     Dates: start: 20190906, end: 20200605
  7. ACETAMINOPHEN. [Concomitant]
     Active Substance: ACETAMINOPHEN
  8. DACTINOMYCIN [Suspect]
     Active Substance: DACTINOMYCIN
     Indication: EMBRYONAL RHABDOMYOSARCOMA
     Dosage: PER DOSING TABLE IV OVER 1?5 MINUTES ON DAY 1 OF CYCLES 12 AND 14
     Route: 042
     Dates: start: 20190906, end: 20200605
  9. CYPROHEPTADINE. [Concomitant]
     Active Substance: CYPROHEPTADINE
  10. LIDOCAINE/PRILOCAINE [Concomitant]
     Active Substance: LIDOCAINE\PRILOCAINE
  11. ONDANSETRON [Concomitant]
     Active Substance: ONDANSETRON

REACTIONS (2)
  - Gastric ulcer [Unknown]
  - Upper gastrointestinal haemorrhage [Unknown]

NARRATIVE: CASE EVENT DATE: 20200623
